FAERS Safety Report 4489013-1 (Version None)
Quarter: 2004Q4

REPORT INFORMATION
  Report Type: 
  Country: None (occurrence: None)
  Receive Date: 20041027
  Receipt Date: 20040923
  Transmission Date: 20050328
  Serious: Yes (Hospitalization)
  Sender: FDA-Public Use
  Company Number: TRP_0016_2004

PATIENT
  Age: 56 Year
  Sex: Female

DRUGS (5)
  1. RIBASPHERE [Suspect]
     Indication: HEPATITIS C
     Dosage: DF PO
     Route: 048
     Dates: end: 20040901
  2. REBETOL [Suspect]
     Indication: HEPATITIS C
     Dosage: DF PO
     Route: 048
     Dates: start: 20040213
  3. PEG-INTRON/PEGINTERFERON-ALFA-2B/SCHERING-PLOUGH/REDIPEN [Suspect]
     Indication: HEPATITIS C
     Dosage: DF
     Dates: start: 20040213
  4. HYDROCHLOROTHIAZIDE [Concomitant]
  5. PAXIL [Concomitant]

REACTIONS (3)
  - RASH ERYTHEMATOUS [None]
  - RASH PRURITIC [None]
  - SKIN INFECTION [None]
